FAERS Safety Report 5217784-5 (Version None)
Quarter: 2007Q1

REPORT INFORMATION
  Report Type: 
  Country: None (occurrence: None)
  Receive Date: 20070124
  Receipt Date: 20070119
  Transmission Date: 20070707
  Serious: Yes (Hospitalization)
  Sender: FDA-Public Use
  Company Number: US-BRISTOL-MYERS SQUIBB COMPANY-13515523

PATIENT
  Age: 43 Year
  Sex: Male
  Weight: 121 kg

DRUGS (2)
  1. BARACLUDE [Suspect]
     Indication: HEPATITIS B
     Route: 048
     Dates: start: 20050509, end: 20060305
  2. ZITHROMAX [Concomitant]

REACTIONS (1)
  - RHABDOMYOLYSIS [None]
